FAERS Safety Report 21014158 (Version 2)
Quarter: 2022Q3

REPORT INFORMATION
  Report Type: Spontaneous
  Country: US (occurrence: US)
  Receive Date: 20220627
  Receipt Date: 20220725
  Transmission Date: 20221027
  Serious: No
  Sender: FDA-Public Use
  Company Number: US-BEH-2022146854

PATIENT
  Sex: Female

DRUGS (3)
  1. HIZENTRA [Suspect]
     Active Substance: HUMAN IMMUNOGLOBULIN G
     Indication: Systemic lupus erythematosus
     Dosage: 9 GRAM, QMT
     Route: 058
     Dates: start: 20220526
  2. HIZENTRA [Suspect]
     Active Substance: HUMAN IMMUNOGLOBULIN G
     Dosage: 8 GRAM EVERY 28 DAYS
     Route: 058
     Dates: start: 20210701
  3. HIZENTRA [Suspect]
     Active Substance: HUMAN IMMUNOGLOBULIN G
     Dosage: 1 GRAM EVERY 28 DAYS
     Route: 058
     Dates: start: 20210701

REACTIONS (4)
  - Swelling [Unknown]
  - No adverse event [Unknown]
  - Off label use [Unknown]
  - Injection site swelling [Unknown]
